FAERS Safety Report 5525980-2 (Version None)
Quarter: 2007Q4

REPORT INFORMATION
  Report Type: 
  Country: None (occurrence: None)
  Receive Date: 20071126
  Receipt Date: 20071120
  Transmission Date: 20080405
  Serious: Yes (Death)
  Sender: FDA-Public Use
  Company Number: DE-BOEHRINGER INGELHEIM PHARMACEUTICALS, INC.-2007-DE-06853DE

PATIENT
  Sex: Female
  Weight: 78 kg

DRUGS (5)
  1. SIFROL [Suspect]
     Indication: RESTLESS LEGS SYNDROME
     Route: 048
     Dates: start: 20070515
  2. SIFROL [Suspect]
     Route: 048
  3. ANTI-HYPERTENSIVES [Concomitant]
     Indication: HYPERTENSION
  4. ANTI-DIABETICS [Concomitant]
     Indication: DIABETES MELLITUS
  5. ANTI-DEPRESSANTS [Concomitant]
     Indication: DEPRESSION

REACTIONS (1)
  - MYOCARDIAL INFARCTION [None]
